FAERS Safety Report 5264736-5 (Version None)
Quarter: 2007Q1

REPORT INFORMATION
  Report Type: 
  Country: None (occurrence: None)
  Receive Date: 20061124
  Receipt Date: 20060808
  Transmission Date: 20070707
  Serious: Yes (Hospitalization, Other)
  Sender: FDA-Public Use
  Company Number: WAES 0606USA01882

PATIENT
  Age: 82 Year
  Sex: Male
  Weight: 63.9572 kg

DRUGS (10)
  1. TAB VYTORIN 10-40 MG TAB VYTORIN 10-80 MG [Suspect]
     Indication: HYPERLIPIDAEMIA
     Dosage: SEE IMAGE
     Route: 048
     Dates: start: 20060124, end: 20060328
  2. TAB VYTORIN 10-40 MG TAB VYTORIN 10-80 MG [Suspect]
     Indication: HYPERLIPIDAEMIA
     Dosage: SEE IMAGE
     Route: 048
     Dates: start: 20060329, end: 20060605
  3. ... [Concomitant]
  4. ACTOS [Concomitant]
  5. ALTACE [Concomitant]
  6. LOPRESSOR [Concomitant]
  7. NEURONTIN [Concomitant]
  8. ULTRAM [Concomitant]
  9. ASPIRIN [Concomitant]
  10. GLIPIZIDE [Concomitant]

REACTIONS (1)
  - RHABDOMYOLYSIS [None]
